FAERS Safety Report 17509634 (Version 1)
Quarter: 2020Q1

REPORT INFORMATION
  Report Type: Spontaneous
  Country: JP (occurrence: JP)
  Receive Date: 20200306
  Receipt Date: 20200306
  Transmission Date: 20200409
  Serious: Yes (Death, Life-Threatening, Hospitalization)
  Sender: FDA-Public Use
  Company Number: JP-ACTELION-A-CH2020-202692

PATIENT
  Sex: Male

DRUGS (8)
  1. OPSUMIT [Suspect]
     Active Substance: MACITENTAN
     Dosage: 1 MG
     Route: 048
     Dates: start: 20181030, end: 20181128
  2. UPTRAVI [Concomitant]
     Active Substance: SELEXIPAG
     Dosage: 0.02 MG, QD
     Route: 048
     Dates: start: 20181030
  3. ADCIRCA [Concomitant]
     Active Substance: TADALAFIL
     Indication: PULMONARY ARTERIAL HYPERTENSION
     Dosage: 1.5 MG, QD
     Route: 048
     Dates: start: 20180612
  4. UPTRAVI [Concomitant]
     Active Substance: SELEXIPAG
     Dosage: 0.04 MG, QD
     Route: 048
     Dates: start: 20181101, end: 20181128
  5. ADCIRCA [Concomitant]
     Active Substance: TADALAFIL
     Dosage: 3 MG, QD
     Route: 048
     Dates: start: 20180615
  6. OPSUMIT [Suspect]
     Active Substance: MACITENTAN
     Indication: PULMONARY ARTERIAL HYPERTENSION
     Dosage: 0.5 MG, QD
     Route: 048
     Dates: start: 20181022
  7. ADCIRCA [Concomitant]
     Active Substance: TADALAFIL
     Dosage: 5 MG, QD
     Route: 048
     Dates: start: 20181022, end: 20181128
  8. ADCIRCA [Concomitant]
     Active Substance: TADALAFIL
     Dosage: 3 MG, QD
     Route: 048
     Dates: start: 20190220

REACTIONS (6)
  - Pulmonary alveolar haemorrhage [Recovering/Resolving]
  - Cardio-respiratory arrest [Fatal]
  - Pulmonary hypertension [Unknown]
  - Interstitial lung disease [Recovering/Resolving]
  - Mycoplasma infection [Unknown]
  - Pulmonary haemosiderosis [Recovering/Resolving]

NARRATIVE: CASE EVENT DATE: 20181028
